FAERS Safety Report 13977581 (Version 1)
Quarter: 2017Q3

REPORT INFORMATION
  Report Type: Spontaneous
  Country: NO (occurrence: NO)
  Receive Date: 20170915
  Receipt Date: 20170915
  Transmission Date: 20171128
  Serious: Yes (Other)
  Sender: FDA-Public Use
  Company Number: NO-BAUSCH-BL-2017-026916

PATIENT
  Age: 28 Year
  Sex: Female

DRUGS (1)
  1. WELLBUTRIN [Suspect]
     Active Substance: BUPROPION HYDROCHLORIDE
     Indication: PRODUCT USED FOR UNKNOWN INDICATION
     Route: 065

REACTIONS (23)
  - Dissociation [Unknown]
  - Palpitations [Recovered/Resolved with Sequelae]
  - Chills [Recovered/Resolved with Sequelae]
  - Malaise [Unknown]
  - Dry mouth [Recovered/Resolved]
  - Paraesthesia [Unknown]
  - Respiration abnormal [Recovered/Resolved]
  - Flushing [Unknown]
  - Memory impairment [Not Recovered/Not Resolved]
  - Muscle twitching [Recovered/Resolved with Sequelae]
  - Hallucination [Recovered/Resolved with Sequelae]
  - Sleep disorder [Recovered/Resolved]
  - Depression [Unknown]
  - Weight decreased [Recovered/Resolved]
  - Loss of consciousness [Unknown]
  - Pain of skin [Not Recovered/Not Resolved]
  - Anxiety [Unknown]
  - Tremor [Recovered/Resolved with Sequelae]
  - Restlessness [Unknown]
  - Arthralgia [Unknown]
  - Disorientation [Recovered/Resolved]
  - Fatigue [Recovered/Resolved with Sequelae]
  - Myalgia [Unknown]
